FAERS Safety Report 23190513 (Version 2)
Quarter: 2023Q4

REPORT INFORMATION
  Report Type: Other
  Country: US (occurrence: US)
  Receive Date: 20231116
  Receipt Date: 20231122
  Transmission Date: 20240109
  Serious: Yes (Life-Threatening, Hospitalization)
  Sender: FDA-Public Use
  Company Number: US-ALVOGEN-2023092543

PATIENT
  Age: 23 Year
  Sex: Female

DRUGS (1)
  1. DEXAMETHASONE [Suspect]
     Active Substance: DEXAMETHASONE
     Indication: Maternal therapy to enhance foetal lung maturity
     Dosage: SINGLE DOSE?EQUIVALENT TO 55 MG OF PREDNISONE

REACTIONS (9)
  - Hypersensitivity pneumonitis [Unknown]
  - Protein-losing gastroenteropathy [Unknown]
  - Pyrexia [Recovering/Resolving]
  - Hypoalbuminaemia [Unknown]
  - Oedema [Unknown]
  - Bacteraemia [Unknown]
  - Ileus paralytic [Unknown]
  - Strongyloidiasis [Unknown]
  - Maternal exposure during pregnancy [Unknown]
